FAERS Safety Report 4571776-8 (Version None)
Quarter: 2005Q1

REPORT INFORMATION
  Report Type: 
  Country: None (occurrence: None)
  Receive Date: 20050202
  Receipt Date: 20050202
  Transmission Date: 20050727
  Serious: No
  Sender: FDA-Public Use
  Company Number: None

PATIENT
  Age: 65 Year
  Sex: Female
  Weight: 58.9676 kg

DRUGS (1)
  1. VYTORIN [Suspect]

REACTIONS (16)
  - AXILLARY PAIN [None]
  - BLOOD BLISTER [None]
  - BODY TEMPERATURE INCREASED [None]
  - BREAST PAIN [None]
  - BURNING SENSATION [None]
  - CAPILLARY DISORDER [None]
  - CONDITION AGGRAVATED [None]
  - FATIGUE [None]
  - FEELING ABNORMAL [None]
  - FEELING HOT [None]
  - INSOMNIA [None]
  - LYMPHADENOPATHY [None]
  - PAIN IN EXTREMITY [None]
  - PRURITUS [None]
  - SWELLING [None]
  - VASCULITIS [None]
